FAERS Safety Report 21690312 (Version 1)
Quarter: 2022Q4

REPORT INFORMATION
  Report Type: Spontaneous
  Country: US (occurrence: None)
  Receive Date: 20221206
  Receipt Date: 20221206
  Transmission Date: 20230113
  Serious: Yes (Death, Hospitalization)
  Sender: FDA-Public Use
  Company Number: None

PATIENT
  Age: 7 Year
  Sex: Female
  Weight: 27.9 kg

DRUGS (2)
  1. DAUNORUBICIN [Suspect]
     Active Substance: DAUNORUBICIN
     Dates: end: 20221024
  2. VINCRISTINE SULFATE [Suspect]
     Active Substance: VINCRISTINE SULFATE
     Dates: end: 20221024

REACTIONS (15)
  - Dyspnoea [None]
  - Acidosis [None]
  - Encephalopathy [None]
  - Discharge [None]
  - Acute kidney injury [None]
  - Hepatic function abnormal [None]
  - Lactic acidosis [None]
  - Condition aggravated [None]
  - Hyperammonaemia [None]
  - Blood lactic acid increased [None]
  - Mental status changes [None]
  - Irritability [None]
  - Dialysis [None]
  - Bradycardia [None]
  - Cardiac arrest [None]

NARRATIVE: CASE EVENT DATE: 20221122
